FAERS Safety Report 8235500-X (Version None)
Quarter: 2012Q1

REPORT INFORMATION
  Report Type: 
  Country: None (occurrence: None)
  Receive Date: 20120322
  Receipt Date: 20120306
  Transmission Date: 20120608
  Serious: Yes (Hospitalization)
  Sender: FDA-Public Use
  Company Number: FK201200771

PATIENT
  Age: 47 Year
  Sex: Male

DRUGS (3)
  1. BLEOMYCIN SULFATE [Suspect]
     Indication: NONGERMINOMATOUS GERM CELL TUMOUR OF THE CNS
  2. ETOPOSIDE [Suspect]
     Indication: NONGERMINOMATOUS GERM CELL TUMOUR OF THE CNS
  3. CISPLATIN [Suspect]
     Indication: NONGERMINOMATOUS GERM CELL TUMOUR OF THE CNS

REACTIONS (10)
  - PARAESTHESIA [None]
  - DECREASED APPETITE [None]
  - SUPERIOR SAGITTAL SINUS THROMBOSIS [None]
  - DEHYDRATION [None]
  - INTRACRANIAL VENOUS SINUS THROMBOSIS [None]
  - NAUSEA [None]
  - MUSCULAR WEAKNESS [None]
  - ASTHENIA [None]
  - HEADACHE [None]
  - TRANSVERSE SINUS THROMBOSIS [None]
